FAERS Safety Report 4460776-4 (Version None)
Quarter: 2004Q3

REPORT INFORMATION
  Report Type: 
  Country: None (occurrence: None)
  Receive Date: 20040928
  Receipt Date: 20040803
  Transmission Date: 20050211
  Serious: No
  Sender: FDA-Public Use
  Company Number: US-GLAXOSMITHKLINE-A0520732A

PATIENT
  Age: 83 Year
  Sex: Female

DRUGS (4)
  1. ADVAIR DISKUS 100/50 [Suspect]
     Indication: ILL-DEFINED DISORDER
     Dosage: 1PUFF TWICE PER DAY
     Route: 055
     Dates: start: 20040717, end: 20040723
  2. TOPROL-XL [Concomitant]
  3. COZAAR [Concomitant]
  4. DILTIA [Concomitant]

REACTIONS (3)
  - APHONIA [None]
  - HOARSENESS [None]
  - ORAL MUCOSAL BLISTERING [None]
